FAERS Safety Report 7149567-3 (Version None)
Quarter: 2010Q4

REPORT INFORMATION
  Report Type: 
  Country: None (occurrence: None)
  Receive Date: 20101209
  Receipt Date: 20101201
  Transmission Date: 20110411
  Serious: Yes (Other)
  Sender: FDA-Public Use
  Company Number: US-SANOFI-AVENTIS-2010SA073022

PATIENT
  Age: 74 Year
  Sex: Female
  Weight: 67 kg

DRUGS (7)
  1. PLAVIX [Suspect]
     Route: 048
     Dates: start: 20060101
  2. PLAVIX [Suspect]
     Indication: STENT PLACEMENT
     Route: 048
     Dates: start: 20060101
  3. TOPROL-XL [Concomitant]
     Indication: HYPERTENSION
  4. SYNTHROID [Concomitant]
  5. CRESTOR [Concomitant]
  6. AVALIDE [Concomitant]
     Indication: HYPERTENSION
  7. SINGULAIR [Concomitant]
     Indication: ASTHMA

REACTIONS (1)
  - ATRIAL FIBRILLATION [None]
